FAERS Safety Report 22962462 (Version 7)
Quarter: 2024Q1

REPORT INFORMATION
  Report Type: Other
  Country: CA (occurrence: None)
  Receive Date: 20230920
  Receipt Date: 20240223
  Transmission Date: 20240410
  Serious: Yes (Hospitalization, Other)
  Sender: FDA-Public Use
  Company Number: CA-ROCHE-3220494

PATIENT
  Sex: Male
  Weight: 97 kg

DRUGS (22)
  1. ACTEMRA [Suspect]
     Active Substance: TOCILIZUMAB
     Indication: Rheumatoid arthritis
     Route: 065
  2. ACTEMRA [Suspect]
     Active Substance: TOCILIZUMAB
     Indication: Systemic lupus erythematosus
  3. RITUXIMAB [Suspect]
     Active Substance: RITUXIMAB
     Indication: Rheumatoid arthritis
     Route: 042
     Dates: start: 20200512, end: 20211115
  4. RITUXIMAB [Suspect]
     Active Substance: RITUXIMAB
     Indication: Systemic lupus erythematosus
     Dosage: DAY 1, DAY 15
     Route: 042
     Dates: start: 20200312, end: 20200329
  5. ACTEMRA [Suspect]
     Active Substance: TOCILIZUMAB
     Indication: Rheumatoid arthritis
     Dosage: TREATMENT SUSPENDED AT THIS TIME
     Route: 042
     Dates: start: 20230104, end: 20230817
  6. ACTEMRA [Suspect]
     Active Substance: TOCILIZUMAB
     Indication: Systemic lupus erythematosus
  7. HYDROXYCHLOROQUINE [Suspect]
     Active Substance: HYDROXYCHLOROQUINE
     Indication: Product used for unknown indication
     Route: 065
  8. PREDNISONE [Suspect]
     Active Substance: PREDNISONE
     Indication: Product used for unknown indication
     Dosage: TAPERING DOWN TO 7.5MG/5MG.
     Route: 065
  9. METHOTREXATE [Concomitant]
     Active Substance: METHOTREXATE
     Indication: Product used for unknown indication
     Route: 058
     Dates: start: 202001
  10. ASPIRIN [Concomitant]
     Active Substance: ASPIRIN
  11. ADALAT [Concomitant]
     Active Substance: NIFEDIPINE
  12. BUPROPION [Concomitant]
     Active Substance: BUPROPION
  13. CYCLOSPORINE [Concomitant]
     Active Substance: CYCLOSPORINE
  14. ESCITALOPRAM [Concomitant]
     Active Substance: ESCITALOPRAM OXALATE
  15. MOMETASONE FUROATE [Concomitant]
     Active Substance: MOMETASONE FUROATE
  16. MYCOPHENOLATE MOFETIL [Concomitant]
     Active Substance: MYCOPHENOLATE MOFETIL
  17. PREDNISONE [Concomitant]
     Active Substance: PREDNISONE
  18. QUETIAPINE [Concomitant]
     Active Substance: QUETIAPINE
  19. RAMIPRIL [Concomitant]
     Active Substance: RAMIPRIL
  20. ACCUTANE [Concomitant]
     Active Substance: ISOTRETINOIN
  21. FOLIC ACID [Concomitant]
     Active Substance: FOLIC ACID
  22. WELLBUTRIN [Concomitant]
     Active Substance: BUPROPION HYDROCHLORIDE

REACTIONS (18)
  - Chronic cutaneous lupus erythematosus [Not Recovered/Not Resolved]
  - Serous retinopathy [Unknown]
  - Cutaneous vasculitis [Unknown]
  - Cellulitis [Not Recovered/Not Resolved]
  - Thrombosis [Unknown]
  - Myocarditis [Unknown]
  - Weight decreased [Unknown]
  - Systemic lupus erythematosus rash [Not Recovered/Not Resolved]
  - Drug hypersensitivity [Unknown]
  - Off label use [Unknown]
  - Therapeutic response shortened [Unknown]
  - Synovitis [Not Recovered/Not Resolved]
  - Antiphospholipid antibodies positive [Not Recovered/Not Resolved]
  - Treatment failure [Unknown]
  - Proteinuria [Unknown]
  - Arthritis [Unknown]
  - Weight increased [Not Recovered/Not Resolved]
  - Osteomyelitis [Unknown]

NARRATIVE: CASE EVENT DATE: 20220101
